FAERS Safety Report 10699400 (Version 3)
Quarter: 2015Q1

REPORT INFORMATION
  Report Type: Report from Study
  Country: US (occurrence: US)
  Receive Date: 20150109
  Receipt Date: 20150206
  Transmission Date: 20150721
  Serious: Yes (Death, Hospitalization)
  Sender: FDA-Public Use
  Company Number: US-ROCHE-1508949

PATIENT
  Age: 60 Year
  Sex: Male
  Weight: 80.36 kg

DRUGS (10)
  1. BEVACIZUMAB [Suspect]
     Active Substance: BEVACIZUMAB
     Indication: COLORECTAL CANCER METASTATIC
     Dosage: DATE OF LAST DOSE PRIOR TO SAE 02/DEC/2014.?CYCLE 5 DAY 1 WILL BE DELAYED TOMORROW, 16/DEC/2014.?DAT
     Route: 042
     Dates: start: 20141021
  2. LEUCOVORIN [Suspect]
     Active Substance: LEUCOVORIN
     Indication: COLORECTAL CANCER METASTATIC
     Dosage: DATE OF LAST DOSE PRIOR TO SAE 02/DEC/2014.?LAST DOSE PRIOR TO SUDDEN DEATH WAS RECIEVED ON 31/DEC/2
     Route: 042
     Dates: start: 20141021
  3. IRINOTECAN [Suspect]
     Active Substance: IRINOTECAN
     Indication: COLORECTAL CANCER METASTATIC
     Dosage: DATE OF LAST DOSE PRIOR TO SAE 02/DEC/2014.?C5D1 WILL BE DELAYED TOMORROW, 16/DEC/2014.
     Route: 042
     Dates: start: 20141021, end: 20141216
  4. 5-FU [Suspect]
     Active Substance: FLUOROURACIL
     Indication: COLORECTAL CANCER METASTATIC
     Dosage: DATE OF LAST DOSE PRIOR TO SAE 02/DEC/2014.?C5D1 WILL BE DELAYED TOMORROW, 16/DEC/2014.
     Route: 042
     Dates: start: 20141021, end: 20141216
  5. BEVACIZUMAB [Suspect]
     Active Substance: BEVACIZUMAB
     Dosage: LAST DOSE PRIOR TO SUDDEN DEATH WAS RECIEVED ON 31/DEC/2014
     Route: 042
     Dates: start: 20141231
  6. OXALIPLATIN. [Suspect]
     Active Substance: OXALIPLATIN
     Indication: COLORECTAL CANCER METASTATIC
     Dosage: DATE OF LAST DOSE PRIOR TO SAE 02/DEC/2014.?C5D1 WILL BE DELAYED TOMORROW, 16/DEC/2014.
     Route: 042
     Dates: start: 20141021, end: 20141216
  7. LEUCOVORIN [Suspect]
     Active Substance: LEUCOVORIN
     Route: 042
     Dates: start: 20141231
  8. OXALIPLATIN. [Suspect]
     Active Substance: OXALIPLATIN
     Dosage: LAST DOSE PRIOR TO SUDDEN DEATH WAS RECIEVED ON 31/DEC/2014
     Route: 042
     Dates: start: 20141231
  9. IRINOTECAN [Suspect]
     Active Substance: IRINOTECAN
     Route: 042
     Dates: start: 20141231
  10. 5-FU [Suspect]
     Active Substance: FLUOROURACIL
     Dosage: DOSE REDUCED (UNSPECIFIED)??LAST DOSE PRIOR TO SUDDEN DEATH WAS RECIEVED ON 31/DEC/2014
     Route: 042
     Dates: start: 20141231

REACTIONS (5)
  - Gastrointestinal perforation [Fatal]
  - Dehydration [Recovered/Resolved]
  - Colitis [Recovered/Resolved]
  - Asthenia [Recovered/Resolved]
  - Neutropenia [Recovered/Resolved]

NARRATIVE: CASE EVENT DATE: 20141214
